FAERS Safety Report 24022672 (Version 2)
Quarter: 2024Q3

REPORT INFORMATION
  Report Type: Report from Study
  Country: MX (occurrence: MX)
  Receive Date: 20240627
  Receipt Date: 20240710
  Transmission Date: 20241016
  Serious: No
  Sender: ROCHE
  Company Number: MX-ROCHE-3436217

PATIENT
  Age: 37 Year
  Sex: Female

DRUGS (1)
  1. ALECENSA [Suspect]
     Active Substance: ALECTINIB HYDROCHLORIDE
     Indication: Lung neoplasm malignant
     Dosage: TAKE 1200 MG ORALLY EVERY 24 HOURS FOR 28 DAYS
     Route: 048
     Dates: start: 20220701

REACTIONS (2)
  - Product prescribing error [Unknown]
  - No adverse event [Unknown]
